FAERS Safety Report 8611726-8 (Version None)
Quarter: 2012Q3

REPORT INFORMATION
  Report Type: 
  Country: None (occurrence: None)
  Receive Date: 20120822
  Receipt Date: 20120813
  Transmission Date: 20120928
  Serious: Yes (Other)
  Sender: FDA-Public Use
  Company Number: IT-ROCHE-1089208

PATIENT
  Sex: Female
  Weight: 57 kg

DRUGS (9)
  1. BISOPROLOL FUMARATE [Concomitant]
     Dates: start: 20120413, end: 20120711
  2. PACLITAXEL [Suspect]
     Indication: BREAST CANCER
     Dosage: DATE OF LAST DOSE PRIOR TO SAE:10/JUL/2012
     Route: 042
     Dates: start: 20120528, end: 20120710
  3. PACLITAXEL [Suspect]
     Route: 042
     Dates: start: 20120731
  4. HERCEPTIN [Suspect]
     Dosage: MAINTANENCE DOSE
     Route: 042
  5. EPIRUBICIN [Concomitant]
     Indication: BREAST CANCER
  6. PERTUZUMAB [Suspect]
     Dosage: MAINTANANCE DOSE
     Route: 042
  7. HERCEPTIN [Suspect]
     Indication: BREAST CANCER
     Dosage: DATE OF LAST DOSE PRIOR TO SAE: 10/JUL/2012, LOADING DOSE
     Route: 042
     Dates: start: 20120528
  8. FLUOROURACIL [Concomitant]
     Indication: BREAST CANCER
  9. PERTUZUMAB [Suspect]
     Indication: BREAST CANCER
     Dosage: DATE OF LAST DOSE PRIOR TO SAE WAS 10/JUL/2012, LOADING DOSE
     Route: 042
     Dates: start: 20120528

REACTIONS (1)
  - ATRIAL FIBRILLATION [None]
